FAERS Safety Report 8557738-4 (Version None)
Quarter: 2012Q3

REPORT INFORMATION
  Report Type: 
  Country: None (occurrence: None)
  Receive Date: 20120801
  Receipt Date: 20120723
  Transmission Date: 20120928
  Serious: Yes (Other)
  Sender: FDA-Public Use
  Company Number: US-ASTRAZENECA-2011SE73230

PATIENT
  Age: 70 Year
  Sex: Female

DRUGS (3)
  1. NEXIUM [Suspect]
     Route: 048
  2. AMLODIPINE [Suspect]
     Route: 065
  3. ATACAND [Suspect]
     Route: 048

REACTIONS (5)
  - CARDIAC DISORDER [None]
  - LETHARGY [None]
  - HYPERTENSION [None]
  - INTENTIONAL DRUG MISUSE [None]
  - DEPRESSION [None]
